APPROVED DRUG PRODUCT: VENLAFAXINE HYDROCHLORIDE
Active Ingredient: VENLAFAXINE HYDROCHLORIDE
Strength: EQ 150MG BASE
Dosage Form/Route: CAPSULE, EXTENDED RELEASE;ORAL
Application: A078087 | Product #003
Applicant: ANCHEN PHARMACEUTICALS INC
Approved: Mar 16, 2012 | RLD: No | RS: No | Type: DISCN